FAERS Safety Report 8265114 (Version 2)
Quarter: 2012Q4

REPORT INFORMATION
  Report Type: 
  Country: MX (occurrence: MX)
  Receive Date: 20111128
  Receipt Date: 20120910
  Transmission Date: 20130627
  Serious: Yes (Other)
  Sender: FDA-Public Use
  Company Number: PHHY2011MX101715

PATIENT
  Age: 80 None
  Sex: Female

DRUGS (2)
  1. EXFORGE [Suspect]
     Indication: HYPERTENSION
     Dosage: 1 tablet (160/10 mg) per day
  2. DITREI [Concomitant]
     Indication: VISION BLURRED
     Dosage: 2 DF, daily

REACTIONS (6)
  - Infarction [Recovered/Resolved]
  - Coronary artery occlusion [Recovered/Resolved]
  - Depression [Recovered/Resolved]
  - Pain in extremity [Recovered/Resolved]
  - Alopecia [Recovered/Resolved]
  - Diarrhoea [Recovered/Resolved]
